FAERS Safety Report 5735333-X (Version None)
Quarter: 2008Q2

REPORT INFORMATION
  Report Type: 
  Country: None (occurrence: None)
  Receive Date: 20080508
  Receipt Date: 20080508
  Transmission Date: 20081010
  Serious: Yes (Other)
  Sender: FDA-Public Use
  Company Number: None

PATIENT
  Age: 74 Year
  Sex: Male
  Weight: 79.3795 kg

DRUGS (1)
  1. CREST PRO-HEALTH MOUTHWASH  (FULL) [Suspect]
     Indication: GINGIVITIS
     Dosage: CAP FULL  TWICE PER DAY  PO
     Route: 048
     Dates: start: 20071116, end: 20080330

REACTIONS (1)
  - DYSGEUSIA [None]
